FAERS Safety Report 8599134-X (Version None)
Quarter: 2012Q3

REPORT INFORMATION
  Report Type: 
  Country: None (occurrence: None)
  Receive Date: 20120816
  Receipt Date: 19951205
  Transmission Date: 20120928
  Serious: Yes (Death)
  Sender: FDA-Public Use
  Company Number: US-ROCHE-1101477

PATIENT
  Age: 62 Year
  Sex: Male

DRUGS (12)
  1. TOBRAMYCIN [Concomitant]
  2. ATROPINE [Concomitant]
  3. SOLU-MEDROL [Concomitant]
  4. ERYTHROMYCIN [Concomitant]
  5. NORCURON [Concomitant]
  6. ACTIVASE [Suspect]
     Indication: HYPOXIC-ISCHAEMIC ENCEPHALOPATHY
  7. AMINOPHILLINE [Concomitant]
  8. ZINACEF [Concomitant]
  9. EPINEPHRINE [Concomitant]
     Route: 042
  10. ALBUTEROL [Concomitant]
  11. DOPAMINE HCL [Concomitant]
  12. VALIUM [Concomitant]
     Route: 042

REACTIONS (4)
  - CYANOSIS [None]
  - MYDRIASIS [None]
  - DEATH [None]
  - BRADYCARDIA [None]
